FAERS Safety Report 7828046-1 (Version None)
Quarter: 2011Q4

REPORT INFORMATION
  Report Type: 
  Country: None (occurrence: None)
  Receive Date: 20111020
  Receipt Date: 20111014
  Transmission Date: 20120403
  Serious: Yes (Other)
  Sender: FDA-Public Use
  Company Number: JP-GLAXOSMITHKLINE-B0750183A

PATIENT
  Sex: Female
  Weight: 45 kg

DRUGS (4)
  1. SOLDEM [Concomitant]
     Dosage: 500ML PER DAY
     Dates: start: 20100617
  2. PANTOL [Concomitant]
     Dosage: 1000ML PER DAY
     Dates: start: 20100617, end: 20100601
  3. UNKNOWN DRUG [Concomitant]
     Dosage: 2G PER DAY
     Route: 042
     Dates: start: 20100617, end: 20100619
  4. ARIXTRA [Suspect]
     Indication: THROMBOSIS PROPHYLAXIS
     Dosage: 2.5MG PER DAY
     Route: 058
     Dates: start: 20100617, end: 20100629

REACTIONS (4)
  - VAGINAL LACERATION [None]
  - VAGINAL HAEMATOMA [None]
  - POST PROCEDURAL HAEMORRHAGE [None]
  - ANAEMIA [None]
